FAERS Safety Report 5738954-3 (Version None)
Quarter: 2008Q2

REPORT INFORMATION
  Report Type: 
  Country: None (occurrence: None)
  Receive Date: 20080515
  Receipt Date: 20080508
  Transmission Date: 20081010
  Serious: Yes (Life-Threatening, Hospitalization)
  Sender: FDA-Public Use
  Company Number: DK-JNJFOC-20080403875

PATIENT
  Sex: Male
  Weight: 71.4 kg

DRUGS (10)
  1. REMICADE [Suspect]
     Dosage: DOSE  = 6 MG/KG AND VARIED DOSE (NOT OTHERWISE SPECIFIED).
     Route: 042
  2. REMICADE [Suspect]
     Dosage: 23 TREATMENTS
     Route: 042
  3. REMICADE [Suspect]
     Indication: ANKYLOSING SPONDYLITIS
     Route: 042
  4. ENBREL [Suspect]
     Indication: ANKYLOSING SPONDYLITIS
     Route: 058
  5. HUMIRA [Suspect]
     Indication: ANKYLOSING SPONDYLITIS
     Route: 058
  6. METHOTREXATE [Concomitant]
     Route: 048
  7. METHOTREXATE [Concomitant]
     Dosage: STARTED BEFORE 2006.  ^JUST NOW STARTED AGAIN.^
     Route: 048
  8. METHOTREXATE [Concomitant]
     Route: 048
  9. PREDNISOLON [Concomitant]
  10. TRAMADOL HCL [Concomitant]
     Dosage: STARTED BEFORE 2006.

REACTIONS (1)
  - PULMONARY TUBERCULOSIS [None]
